FAERS Safety Report 14293947 (Version 2)
Quarter: 2017Q4

REPORT INFORMATION
  Report Type: Spontaneous
  Country: US (occurrence: US)
  Receive Date: 20171216
  Receipt Date: 20171220
  Transmission Date: 20180321
  Serious: Yes (Life-Threatening, Other)
  Sender: FDA-Public Use
  Company Number: US-GLENMARK PHARMACEUTICALS-2017GMK030032

PATIENT
  Age: 37 Year
  Sex: Female

DRUGS (1)
  1. TRIAMCINOLONE ACETONIDE. [Suspect]
     Active Substance: TRIAMCINOLONE ACETONIDE
     Indication: GRANULOMA
     Dosage: UNK
     Route: 026

REACTIONS (2)
  - Type I hypersensitivity [Recovering/Resolving]
  - Anaphylactic reaction [Recovering/Resolving]
